FAERS Safety Report 4365317-8 (Version None)
Quarter: 2004Q2

REPORT INFORMATION
  Report Type: 
  Country: None (occurrence: None)
  Receive Date: 20040520
  Receipt Date: 20040513
  Transmission Date: 20050107
  Serious: Yes (Hospitalization, Other)
  Sender: FDA-Public Use
  Company Number: 2004014335

PATIENT
  Age: 68 Year
  Sex: Female
  Weight: 68.9467 kg

DRUGS (17)
  1. LIPITOR [Suspect]
     Indication: HYPERLIPIDAEMIA
     Dosage: 40 MG (1 IN 1 D), ORAL
     Route: 048
     Dates: start: 19981101, end: 20040201
  2. GLIMEPIRIDE [Suspect]
     Indication: DIABETES MELLITUS NON-INSULIN-DEPENDENT
     Dosage: 2 MG (2 MG, 1 IN  1 D), ORAL
     Route: 048
     Dates: start: 20030401
  3. VERAPAMIL [Concomitant]
  4. TOCOPHEROL CONCENTRATE CAP [Concomitant]
  5. TRIAMCINOLONE ACETONIDE [Concomitant]
  6. MULTIVITAMINS, PLAIN (MULTIVITAMINS, PLAIN) [Concomitant]
  7. NIFEDIPINE [Concomitant]
  8. OMEPRAZOLE [Concomitant]
  9. LOSARTAN POTASSIUM [Concomitant]
  10. FLUTICASONE PROPIONATE [Concomitant]
  11. FAMOTIDINE [Concomitant]
  12. VERAPAMIL HCL [Concomitant]
  13. FAMOTIDINE [Concomitant]
  14. OMEPRAZOLE [Concomitant]
  15. LOSARTAN POTASSIUM [Concomitant]
  16. NIFEDIPINE [Concomitant]
  17. FLUTICASONE PROPIONATE [Concomitant]

REACTIONS (11)
  - ALANINE AMINOTRANSFERASE INCREASED [None]
  - ARTHRALGIA [None]
  - ASPARTATE AMINOTRANSFERASE INCREASED [None]
  - BLOOD CREATINE PHOSPHOKINASE INCREASED [None]
  - BLOOD PRESSURE SYSTOLIC INCREASED [None]
  - DIABETES MELLITUS INADEQUATE CONTROL [None]
  - LIVER FUNCTION TEST ABNORMAL [None]
  - LOW DENSITY LIPOPROTEIN INCREASED [None]
  - MYALGIA [None]
  - MYOGLOBIN BLOOD INCREASED [None]
  - RHEUMATOID FACTOR INCREASED [None]
